FAERS Safety Report 25106533 (Version 1)
Quarter: 2025Q1

REPORT INFORMATION
  Report Type: Spontaneous
  Country: RU (occurrence: RU)
  Receive Date: 20250321
  Receipt Date: 20250321
  Transmission Date: 20250409
  Serious: Yes (Other)
  Sender: SAREPTA THERAPEUTICS
  Company Number: RU-SAREPTA THERAPEUTICS INC.-SRP2025-005782

PATIENT

DRUGS (1)
  1. ELEVIDYS [Suspect]
     Active Substance: DELANDISTROGENE MOXEPARVOVEC-ROKL
     Indication: Product used for unknown indication
     Route: 065

REACTIONS (2)
  - Blood creatine phosphokinase increased [Unknown]
  - Transaminases increased [Unknown]
